FAERS Safety Report 7286058-3 (Version None)
Quarter: 2011Q1

REPORT INFORMATION
  Report Type: 
  Country: None (occurrence: None)
  Receive Date: 20110210
  Receipt Date: 20110131
  Transmission Date: 20110831
  Serious: Yes (Hospitalization)
  Sender: FDA-Public Use
  Company Number: AT-ELI_LILLY_AND_COMPANY-AT201102000139

PATIENT
  Age: 56 Year
  Sex: Female

DRUGS (17)
  1. ZYPREXA [Suspect]
     Dosage: 20 MG, DAILY (1/D)
     Dates: start: 20060401, end: 20100902
  2. NOZINAN [Concomitant]
     Dosage: 50 MG, UNK
     Dates: start: 20100908, end: 20100909
  3. CIATYL-Z [Concomitant]
     Dosage: 30 MG, UNK
     Dates: start: 20100916, end: 20100921
  4. CIATYL-Z [Concomitant]
     Dosage: 40 MG, UNK
     Dates: start: 20100922
  5. TEMESTA [Concomitant]
     Dosage: 1.25 MG, UNK
     Dates: start: 20100915, end: 20100926
  6. TEMESTA [Concomitant]
     Dosage: 3.75 MG, UNK
     Dates: start: 20100831, end: 20100914
  7. ZYPREXA [Suspect]
     Dosage: 30 MG, DAILY (1/D)
     Dates: start: 20100910, end: 20101005
  8. DOMINAL [Concomitant]
     Dosage: 40 MG, UNK
     Dates: start: 20100831, end: 20100906
  9. DOMINAL [Concomitant]
     Dosage: 80 MG, UNK
     Dates: start: 20100907
  10. ZYPREXA [Suspect]
     Dosage: 25 MG, DAILY (1/D)
     Dates: start: 20101006
  11. CIATYL-Z [Concomitant]
     Dosage: 20 MG, UNK
     Dates: start: 20100913, end: 20100915
  12. ZYPREXA [Suspect]
     Dosage: 25 MG, DAILY (1/D)
     Dates: start: 20100903, end: 20100909
  13. HALDOL [Concomitant]
     Dosage: 3 MG, UNK
     Dates: start: 20100906, end: 20100906
  14. HALDOL [Concomitant]
     Dosage: 5 MG, UNK
     Dates: start: 20100907, end: 20100912
  15. EUTHYROX [Concomitant]
     Dosage: 75 UG, UNK
  16. NOZINAN [Concomitant]
     Dosage: 100 MG, UNK
     Dates: start: 20100910, end: 20100927
  17. NOZINAN [Concomitant]
     Dosage: 75 MG, UNK
     Dates: start: 20100928

REACTIONS (5)
  - TONGUE DISCOLOURATION [None]
  - NASAL DRYNESS [None]
  - OVERDOSE [None]
  - HOSPITALISATION [None]
  - DRUG LEVEL INCREASED [None]
